FAERS Safety Report 21249011 (Version 6)
Quarter: 2023Q1

REPORT INFORMATION
  Report Type: Spontaneous
  Country: US (occurrence: US)
  Receive Date: 20220824
  Receipt Date: 20230321
  Transmission Date: 20230418
  Serious: Yes (Other)
  Sender: FDA-Public Use
  Company Number: US-PFIZER INC-PV202200048226

PATIENT
  Age: 49 Year
  Sex: Female
  Weight: 66 kg

DRUGS (2)
  1. XELJANZ XR [Suspect]
     Active Substance: TOFACITINIB CITRATE
     Indication: Rheumatoid arthritis
     Dosage: 11 MG, 1X/DAY
     Route: 048
     Dates: start: 20220812
  2. XELJANZ XR [Suspect]
     Active Substance: TOFACITINIB CITRATE
     Dosage: 11 MG, 1X/DAY
     Route: 048
     Dates: start: 20220813, end: 20230207

REACTIONS (21)
  - Cataract [Unknown]
  - Hepatomegaly [Unknown]
  - Drug ineffective [Unknown]
  - Vision blurred [Unknown]
  - Ear pain [Recovered/Resolved]
  - Ear disorder [Recovered/Resolved]
  - Muscle spasms [Unknown]
  - Malaise [Unknown]
  - Pain in extremity [Not Recovered/Not Resolved]
  - Arthralgia [Not Recovered/Not Resolved]
  - Hypertransaminasaemia [Unknown]
  - Fatigue [Unknown]
  - Stress [Unknown]
  - General physical health deterioration [Unknown]
  - Hand deformity [Unknown]
  - Blood calcium decreased [Unknown]
  - Tooth disorder [Unknown]
  - Finger deformity [Unknown]
  - Tinnitus [Recovered/Resolved]
  - Ear discomfort [Recovered/Resolved]
  - Arthralgia [Recovering/Resolving]

NARRATIVE: CASE EVENT DATE: 20220101
